FAERS Safety Report 13966588 (Version 3)
Quarter: 2018Q1

REPORT INFORMATION
  Report Type: Spontaneous
  Country: RU (occurrence: RU)
  Receive Date: 20170913
  Receipt Date: 20180220
  Transmission Date: 20180508
  Serious: Yes (Hospitalization)
  Sender: FDA-Public Use
  Company Number: RU-ASTRAZENECA-2017SE92672

PATIENT
  Age: 61 Year
  Sex: Female
  Weight: 78 kg

DRUGS (5)
  1. INSULIN [Concomitant]
     Active Substance: INSULIN NOS
  2. LEVEMIR [Concomitant]
     Active Substance: INSULIN DETEMIR
  3. FORXIGA [Suspect]
     Active Substance: DAPAGLIFLOZIN
     Indication: TYPE 2 DIABETES MELLITUS
     Route: 048
     Dates: start: 2014
  4. GLUCOPHAGE [Concomitant]
     Active Substance: METFORMIN HYDROCHLORIDE
  5. HUMULIN NOS [Concomitant]
     Active Substance: INSULIN HUMAN

REACTIONS (5)
  - Ketonuria [Recovered/Resolved]
  - Renal disorder [Recovered/Resolved]
  - Hypoglycaemia [Recovered/Resolved]
  - Glycosuria [Recovered/Resolved]
  - Proteinuria [Recovered/Resolved]

NARRATIVE: CASE EVENT DATE: 2016
